FAERS Safety Report 17299412 (Version 1)
Quarter: 2020Q1

REPORT INFORMATION
  Report Type: Spontaneous
  Country: US (occurrence: US)
  Receive Date: 20200122
  Receipt Date: 20200122
  Transmission Date: 20200409
  Serious: No
  Sender: FDA-Public Use
  Company Number: US-ALLERGAN-1908647US

PATIENT
  Age: 50 Year
  Sex: Female

DRUGS (8)
  1. NASONEX [Concomitant]
     Active Substance: MOMETASONE FUROATE
     Dosage: UNK
  2. SINGULAIR [Concomitant]
     Active Substance: MONTELUKAST SODIUM
     Dosage: UNK
  3. ANTI ALLERGIC AGENTS [Concomitant]
     Active Substance: UNSPECIFIED INGREDIENT
     Indication: HYPERSENSITIVITY
     Dosage: UNK
  4. AZELASTINE HCL [Concomitant]
     Active Substance: AZELASTINE HYDROCHLORIDE
     Dosage: UNK
     Route: 045
     Dates: end: 201901
  5. SYMBICORT [Concomitant]
     Active Substance: BUDESONIDE\FORMOTEROL FUMARATE DIHYDRATE
     Dosage: UNK
  6. RESTASIS [Suspect]
     Active Substance: CYCLOSPORINE
     Indication: DRY EYE
     Dosage: UNK UNK, BID (ONCE IN MORNING AND ONCE AT BEDTIME)
     Route: 047
     Dates: start: 2017, end: 20190207
  7. ATORVASTATIN [Concomitant]
     Active Substance: ATORVASTATIN
     Dosage: LOW DOSE
  8. ALLEGRA [Concomitant]
     Active Substance: FEXOFENADINE HYDROCHLORIDE
     Dosage: UNK

REACTIONS (9)
  - Erythema [Not Recovered/Not Resolved]
  - Eye disorder [Not Recovered/Not Resolved]
  - Erythema of eyelid [Not Recovered/Not Resolved]
  - Scleral discolouration [Not Recovered/Not Resolved]
  - Product dose omission [Unknown]
  - Eye pruritus [Not Recovered/Not Resolved]
  - Dry skin [Not Recovered/Not Resolved]
  - Eye irritation [Not Recovered/Not Resolved]
  - Eye pain [Not Recovered/Not Resolved]

NARRATIVE: CASE EVENT DATE: 20190207
